FAERS Safety Report 7272377-3 (Version None)
Quarter: 2011Q1

REPORT INFORMATION
  Report Type: 
  Country: None (occurrence: None)
  Receive Date: 20110203
  Receipt Date: 20110131
  Transmission Date: 20110831
  Serious: Yes (Other)
  Sender: FDA-Public Use
  Company Number: FR-SANOFI-AVENTIS-2011SA006163

PATIENT
  Age: 88 Year
  Sex: Female

DRUGS (2)
  1. SOTALOL HCL [Concomitant]
     Route: 065
  2. MULTAQ [Suspect]
     Route: 048

REACTIONS (3)
  - CARDIAC FAILURE [None]
  - OEDEMA [None]
  - DIZZINESS [None]
